FAERS Safety Report 21374734 (Version 1)
Quarter: 2022Q3

REPORT INFORMATION
  Report Type: Spontaneous
  Country: US (occurrence: US)
  Receive Date: 20220926
  Receipt Date: 20220926
  Transmission Date: 20221027
  Serious: No
  Sender: FDA-Public Use
  Company Number: US-ALLERGAN-2143427US

PATIENT
  Age: 71 Year
  Sex: Female
  Weight: 77.11 kg

DRUGS (5)
  1. LEXAPRO [Suspect]
     Active Substance: ESCITALOPRAM OXALATE
     Indication: Depression
     Dosage: 20 MG, QD
     Dates: start: 2021, end: 2021
  2. LEXAPRO [Suspect]
     Active Substance: ESCITALOPRAM OXALATE
     Dosage: 10 MG, BID
     Dates: start: 20210818
  3. FASLODEX [Concomitant]
     Active Substance: FULVESTRANT
  4. VERZENIO [Concomitant]
     Active Substance: ABEMACICLIB
     Indication: Breast cancer
  5. IBRANCE [Concomitant]
     Active Substance: PALBOCICLIB

REACTIONS (5)
  - Depression [Recovered/Resolved]
  - Condition aggravated [Recovered/Resolved]
  - Inappropriate schedule of product administration [Unknown]
  - Asthenia [Recovered/Resolved]
  - Drug ineffective [Unknown]

NARRATIVE: CASE EVENT DATE: 20211101
